FAERS Safety Report 14914939 (Version 1)
Quarter: 2018Q2

REPORT INFORMATION
  Report Type: Spontaneous
  Country: US (occurrence: US)
  Receive Date: 20180501
  Receipt Date: 20180501
  Transmission Date: 20180711
  Serious: Yes (Life-Threatening, Disabling)
  Sender: FDA-Public Use
  Company Number: None

PATIENT
  Age: 59 Year
  Sex: Female
  Weight: 151.95 kg

DRUGS (2)
  1. RISPERDAL [Suspect]
     Active Substance: RISPERIDONE
     Indication: SCHIZOPHRENIA
     Dates: start: 201207
  2. INVEGA [Suspect]
     Active Substance: PALIPERIDONE
     Indication: SCHIZOPHRENIA
     Dates: start: 201608

REACTIONS (21)
  - Back pain [None]
  - Movement disorder [None]
  - Pharyngeal oedema [None]
  - Weight increased [None]
  - Breast tenderness [None]
  - Swelling face [None]
  - Swollen tongue [None]
  - Abdominal pain upper [None]
  - Musculoskeletal stiffness [None]
  - Reduced facial expression [None]
  - Dyspnoea [None]
  - Intrusive thoughts [None]
  - Balance disorder [None]
  - Mouth swelling [None]
  - Pain in extremity [None]
  - Breast enlargement [None]
  - Neck pain [None]
  - Abdominal pain [None]
  - Arthralgia [None]
  - Peripheral swelling [None]
  - Speech disorder [None]

NARRATIVE: CASE EVENT DATE: 20170216
